FAERS Safety Report 7772700-7 (Version None)
Quarter: 2011Q3

REPORT INFORMATION
  Report Type: 
  Country: None (occurrence: None)
  Receive Date: 20110922
  Receipt Date: 20110615
  Transmission Date: 20111222
  Serious: Yes (Other)
  Sender: FDA-Public Use
  Company Number: US-ASTRAZENECA-2007UW10501

PATIENT
  Age: 584 Month
  Sex: Male
  Weight: 104.3 kg

DRUGS (13)
  1. SEROQUEL [Suspect]
     Route: 048
     Dates: start: 20060101, end: 20070101
  2. SEROQUEL [Suspect]
     Route: 048
     Dates: start: 20060101, end: 20070101
  3. CYMBALTA [Concomitant]
  4. EFFEXOR XR [Concomitant]
     Dosage: 75 MG THREE CAPS QD FOR 30 DAYS
     Dates: start: 20060101
  5. SEROQUEL [Suspect]
     Indication: DEPRESSION
     Dosage: 25 MG 2 TABS QHS FOR 30 DAYS
     Route: 048
     Dates: start: 20060101
  6. SEROQUEL [Suspect]
     Route: 048
     Dates: end: 20070821
  7. SEROQUEL [Suspect]
     Indication: INSOMNIA
     Dosage: 25 MG 2 TABS QHS FOR 30 DAYS
     Route: 048
     Dates: start: 20060101
  8. SEROQUEL [Suspect]
     Route: 048
     Dates: start: 20060101, end: 20070101
  9. CYMBALTA [Concomitant]
     Dosage: 30 DAYS
     Dates: start: 20070801
  10. METHADONE HCL [Concomitant]
  11. SEROQUEL [Suspect]
     Route: 048
     Dates: end: 20070821
  12. SEROQUEL [Suspect]
     Route: 048
     Dates: end: 20070821
  13. SEROQUEL [Suspect]
     Indication: ANXIETY
     Dosage: 25 MG 2 TABS QHS FOR 30 DAYS
     Route: 048
     Dates: start: 20060101

REACTIONS (2)
  - PANCREATITIS [None]
  - TYPE 2 DIABETES MELLITUS [None]
